FAERS Safety Report 9747304 (Version 2)
Quarter: 2013Q4

REPORT INFORMATION
  Report Type: Spontaneous
  Country: US (occurrence: US)
  Receive Date: 20131212
  Receipt Date: 20131212
  Transmission Date: 20140711
  Serious: Yes (Hospitalization, Other)
  Sender: FDA-Public Use
  Company Number: US-BEH-2012033837

PATIENT
  Age: 57 Year
  Sex: Female

DRUGS (1)
  1. ZEMAIRA [Suspect]

REACTIONS (3)
  - Pneumonia [Unknown]
  - Migraine [Unknown]
  - Gastroenteritis viral [Unknown]
